FAERS Safety Report 15189348 (Version 1)
Quarter: 2018Q3

REPORT INFORMATION
  Report Type: Spontaneous
  Country: US (occurrence: US)
  Receive Date: 20180724
  Receipt Date: 20180724
  Transmission Date: 20181010
  Serious: Yes (Life-Threatening, Hospitalization, Other)
  Sender: FDA-Public Use
  Company Number: US-BAYER-2018-135035

PATIENT
  Age: 53 Year
  Sex: Male

DRUGS (2)
  1. ACETYLSALICYLIC ACID({=100 MG) [Suspect]
     Active Substance: ASPIRIN
     Dosage: UNK
  2. WARFARIN [Interacting]
     Active Substance: WARFARIN
     Dosage: UNK

REACTIONS (11)
  - Depressed level of consciousness [None]
  - Hepatic haemorrhage [None]
  - Left ventricular diastolic collapse [None]
  - Shock haemorrhagic [None]
  - Haemoglobin decreased [None]
  - Peritoneal haemorrhage [None]
  - Right ventricular diastolic collapse [None]
  - Mitral valve disease [None]
  - Off label use [None]
  - Incision site haematoma [None]
  - Apnoea [None]
